FAERS Safety Report 15795451 (Version 1)
Quarter: 2019Q1

REPORT INFORMATION
  Report Type: Spontaneous
  Country: US (occurrence: US)
  Receive Date: 20190107
  Receipt Date: 20190107
  Transmission Date: 20190417
  Serious: Yes (Disabling)
  Sender: FDA-Public Use
  Company Number: None

PATIENT
  Age: 70 Year
  Sex: Female

DRUGS (1)
  1. AMLODIPINE BESYLATE. [Suspect]
     Active Substance: AMLODIPINE BESYLATE
     Indication: HYPERTENSION
     Dates: start: 20181211, end: 20190102

REACTIONS (4)
  - Psychomotor hyperactivity [None]
  - Blood pressure increased [None]
  - Product substitution issue [None]
  - Insomnia [None]

NARRATIVE: CASE EVENT DATE: 20181213
